FAERS Safety Report 4764708-0 (Version None)
Quarter: 2005Q3

REPORT INFORMATION
  Report Type: 
  Country: None (occurrence: None)
  Receive Date: 20050909
  Receipt Date: 20050316
  Transmission Date: 20060218
  Serious: Yes (Hospitalization)
  Sender: FDA-Public Use
  Company Number: US-MERCK-0503USA03279

PATIENT
  Age: 75 Year
  Sex: Male
  Weight: 136 kg

DRUGS (6)
  1. VIOXX [Suspect]
     Indication: BACK PAIN
     Route: 048
     Dates: start: 19991201, end: 20040901
  2. FUROSEMIDE [Concomitant]
     Route: 065
  3. INSULIN [Concomitant]
     Route: 065
  4. POTASSIUM CHLORIDE [Concomitant]
     Route: 065
  5. TYLENOL [Concomitant]
     Indication: PAIN
     Route: 065
     Dates: start: 19950601
  6. DIURETIC (UNSPECIFIED) [Concomitant]
     Indication: OEDEMA PERIPHERAL
     Route: 065
     Dates: start: 19950601

REACTIONS (2)
  - CARDIAC DISORDER [None]
  - MYOCARDIAL INFARCTION [None]
